FAERS Safety Report 8513720-4 (Version None)
Quarter: 2012Q3

REPORT INFORMATION
  Report Type: 
  Country: None (occurrence: None)
  Receive Date: 20120717
  Receipt Date: 20120713
  Transmission Date: 20120928
  Serious: Yes (Life-Threatening)
  Sender: FDA-Public Use
  Company Number: FR-SHIRE-SPV1-2012-00647

PATIENT
  Sex: Female

DRUGS (3)
  1. ANAGRELIDE HYDROCHLORIDE [Suspect]
     Indication: THROMBOCYTOSIS
     Dosage: 0.5 MG, 1X/DAY:QD
     Route: 048
     Dates: start: 20100201
  2. NSAID'S [Concomitant]
     Indication: BACK PAIN
     Dosage: UNK
     Dates: start: 20120501
  3. ASPIRIN [Suspect]
     Indication: PRODUCT USED FOR UNKNOWN INDICATION
     Dosage: 75 MG, 1X/DAY:QD
     Route: 048

REACTIONS (1)
  - PERITONEAL HAEMORRHAGE [None]
